FAERS Safety Report 7036266-1 (Version None)
Quarter: 2010Q4

REPORT INFORMATION
  Report Type: 
  Country: None (occurrence: None)
  Receive Date: 20101008
  Receipt Date: 20100817
  Transmission Date: 20110411
  Serious: Yes (Death)
  Sender: FDA-Public Use
  Company Number: US-ABBOTT-10P-163-0664334-00

PATIENT
  Age: 43 Year
  Sex: Male
  Weight: 70 kg

DRUGS (6)
  1. DEPAKOTE [Suspect]
     Indication: CONVULSION
     Route: 048
  2. DEPAKOTE [Suspect]
     Indication: HEAD INJURY
  3. CHANTIX [Suspect]
     Indication: SMOKING CESSATION THERAPY
     Route: 048
     Dates: start: 20091101
  4. CHANTIX [Suspect]
     Dates: start: 20100201
  5. CHANTIX [Suspect]
     Dates: end: 20100508
  6. KEPPRA [Suspect]
     Indication: CONVULSION

REACTIONS (2)
  - CONVULSION [None]
  - SOMNOLENCE [None]
